FAERS Safety Report 7935637-6 (Version None)
Quarter: 2011Q4

REPORT INFORMATION
  Report Type: 
  Country: None (occurrence: None)
  Receive Date: 20111123
  Receipt Date: 20111114
  Transmission Date: 20120403
  Serious: Yes (Hospitalization)
  Sender: FDA-Public Use
  Company Number: US-ELI_LILLY_AND_COMPANY-US201111005697

PATIENT
  Sex: Female

DRUGS (10)
  1. HUMULIN R [Suspect]
     Indication: TYPE 2 DIABETES MELLITUS
     Dosage: 5 U, 5 U, 10 U
     Route: 065
  2. PREDNISONE TAB [Concomitant]
     Indication: ASTHMA
  3. ACTOS [Concomitant]
     Indication: TYPE 2 DIABETES MELLITUS
  4. ASPIRIN [Concomitant]
     Dosage: 81 MG, UNK
  5. HUMULIN 70/30 [Suspect]
     Indication: TYPE 2 DIABETES MELLITUS
     Dosage: UNK UNK, UNKNOWN
     Route: 065
     Dates: end: 20110201
  6. VICTOZA [Concomitant]
     Indication: TYPE 2 DIABETES MELLITUS
     Dosage: UNK
     Dates: start: 20110415
  7. DIOVAN [Concomitant]
     Indication: PROTEIN URINE PRESENT
     Dosage: UNK
  8. CORTICOSTEROIDS [Concomitant]
     Indication: ASTHMA
  9. ASCORBIC ACID [Concomitant]
     Dosage: UNK
  10. VITAMIN D [Concomitant]
     Dosage: UNK

REACTIONS (6)
  - BLOOD GLUCOSE INCREASED [None]
  - HEADACHE [None]
  - DRUG DOSE OMISSION [None]
  - WEIGHT DECREASED [None]
  - HYPOGLYCAEMIA [None]
  - HYPERSOMNIA [None]
